FAERS Safety Report 18075861 (Version 1)
Quarter: 2020Q3

REPORT INFORMATION
  Report Type: Spontaneous
  Country: US (occurrence: US)
  Receive Date: 20200727
  Receipt Date: 20200727
  Transmission Date: 20201103
  Serious: No
  Sender: FDA-Public Use
  Company Number: US-ABBVIE-19K-163-2936907-00

PATIENT

DRUGS (1)
  1. SYNTHROID [Suspect]
     Active Substance: LEVOTHYROXINE SODIUM
     Indication: PRODUCT USED FOR UNKNOWN INDICATION
     Route: 048

REACTIONS (7)
  - Nodule [Unknown]
  - Feeling abnormal [Unknown]
  - Hypertension [Unknown]
  - Bone pain [Unknown]
  - Arthralgia [Unknown]
  - Palpitations [Unknown]
  - Asthenia [Unknown]
